FAERS Safety Report 21268451 (Version 1)
Quarter: 2022Q3

REPORT INFORMATION
  Report Type: Spontaneous
  Country: US (occurrence: None)
  Receive Date: 20220830
  Receipt Date: 20220830
  Transmission Date: 20221027
  Serious: Yes (Disabling)
  Sender: FDA-Public Use
  Company Number: US-Hikma Pharmaceuticals USA Inc.-US-H14001-22-02117

PATIENT
  Sex: Male

DRUGS (1)
  1. PREDNISONE [Suspect]
     Active Substance: PREDNISONE
     Indication: Anaemia
     Dosage: UNKNOWN
     Route: 065

REACTIONS (4)
  - Iron overload [Unknown]
  - Drug resistance [Unknown]
  - Osteoporosis [Unknown]
  - Pathological fracture [Unknown]
